FAERS Safety Report 9684845 (Version 1)
Quarter: 2013Q4

REPORT INFORMATION
  Report Type: Spontaneous
  Country: IT (occurrence: IT)
  Receive Date: 20131112
  Receipt Date: 20131112
  Transmission Date: 20140711
  Serious: Yes (Other)
  Sender: FDA-Public Use
  Company Number: IT-TEVA-441910ISR

PATIENT
  Age: 51 Year
  Sex: Female
  Weight: 66 kg

DRUGS (5)
  1. OXALIPLATINO TEVA [Suspect]
     Indication: PANCREATIC CARCINOMA
     Dosage: 134.3 MILLIGRAM DAILY;
     Route: 042
     Dates: start: 20130405, end: 20130517
  2. GEMCITABINA ACCORD [Suspect]
     Indication: PANCREATIC CARCINOMA
     Dosage: 1343 MILLIGRAM DAILY;
     Route: 042
     Dates: start: 20130405, end: 20130517
  3. SOLDESAM [Concomitant]
     Dosage: 8 MILLIGRAM DAILY;
     Route: 042
     Dates: start: 20130405, end: 20130517
  4. RANIDIL [Concomitant]
     Dosage: 50 MILLIGRAM DAILY;
     Route: 042
     Dates: start: 20130405, end: 20130517
  5. ONDANSETRONE HIKMA [Concomitant]
     Dosage: 8 MILLIGRAM DAILY;
     Route: 042
     Dates: start: 20130405, end: 20130517

REACTIONS (5)
  - Asthenia [Unknown]
  - Formication [Unknown]
  - Nausea [Unknown]
  - Pyrexia [Unknown]
  - Vomiting [Unknown]
